FAERS Safety Report 17156876 (Version 1)
Quarter: 2019Q4

REPORT INFORMATION
  Report Type: Spontaneous
  Country: SE (occurrence: SE)
  Receive Date: 20191216
  Receipt Date: 20191216
  Transmission Date: 20200122
  Serious: Yes (Hospitalization)
  Sender: FDA-Public Use
  Company Number: SE-TEVA-2019-SE-1151086

PATIENT
  Sex: Female

DRUGS (3)
  1. LERGIGAN (PROMETHAZINE HYDROCHLORIDE) [Suspect]
     Active Substance: PROMETHAZINE HYDROCHLORIDE
     Dosage: 500-625 MG
     Route: 048
     Dates: start: 20190714, end: 20190714
  2. FLUOXETINE [Suspect]
     Active Substance: FLUOXETINE HYDROCHLORIDE
     Dosage: 2-3X20 MG
     Route: 048
     Dates: start: 20190714, end: 20190714
  3. MELATONIN [Suspect]
     Active Substance: MELATONIN
     Dosage: 60MILLIGRAM
     Route: 048
     Dates: start: 20190714, end: 20190714

REACTIONS (4)
  - Hypotension [Unknown]
  - Suicide attempt [Unknown]
  - Fatigue [Unknown]
  - Intentional overdose [Unknown]

NARRATIVE: CASE EVENT DATE: 20190714
